FAERS Safety Report 4718320-X (Version None)
Quarter: 2005Q3

REPORT INFORMATION
  Report Type: 
  Country: None (occurrence: None)
  Receive Date: 20050718
  Receipt Date: 20050718
  Transmission Date: 20060218
  Serious: No
  Sender: FDA-Public Use
  Company Number: None

PATIENT
  Age: 79 Year
  Sex: Male
  Weight: 70 kg

DRUGS (1)
  1. FLUORESCEIN 100 MG/ML , 5 ML VIAL AKORN [Suspect]
     Indication: ANGIOGRAM
     Dosage: 50 MG ONE TIME DOSE IV
     Route: 042
     Dates: start: 20050517, end: 20050517

REACTIONS (3)
  - BREATH SOUNDS ABNORMAL [None]
  - PRURITUS [None]
  - URTICARIA [None]
